FAERS Safety Report 7943085-8 (Version None)
Quarter: 2011Q4

REPORT INFORMATION
  Report Type: 
  Country: None (occurrence: None)
  Receive Date: 20111128
  Receipt Date: 20111116
  Transmission Date: 20120403
  Serious: Yes (Death, Hospitalization, Other)
  Sender: FDA-Public Use
  Company Number: JP-AMGEN-JPNCT2011040403

PATIENT
  Age: 51 Year
  Sex: Male
  Weight: 74 kg

DRUGS (19)
  1. CORTICOSTEROIDS [Concomitant]
     Indication: PROPHYLAXIS
     Dosage: UNK
     Route: 065
  2. LEVOLEUCOVORIN CALCIUM [Concomitant]
     Route: 041
     Dates: start: 20101001, end: 20101029
  3. VOLTAREN [Concomitant]
     Dosage: UNK
     Route: 048
  4. MUCOSTA [Concomitant]
     Dosage: UNK
     Route: 048
  5. PANITUMUMAB [Suspect]
     Indication: COLORECTAL CANCER
     Dosage: 440 MG, Q2WK
     Route: 041
     Dates: start: 20101001, end: 20101029
  6. LASIX [Concomitant]
     Dosage: UNK
     Route: 048
  7. DECADRON [Concomitant]
     Dosage: UNK
     Route: 048
  8. IRINOTECAN HCL [Concomitant]
     Indication: COLORECTAL CANCER
     Route: 041
     Dates: start: 20101001
  9. FLUOROURACIL [Concomitant]
     Route: 041
     Dates: start: 20101001
  10. FLUOROURACIL [Concomitant]
     Route: 041
     Dates: start: 20101001, end: 20101029
  11. FLUOROURACIL [Concomitant]
     Indication: COLORECTAL CANCER
     Route: 040
     Dates: start: 20101001
  12. ANTIHISTAMINES [Concomitant]
     Indication: PROPHYLAXIS
     Dosage: UNK
     Route: 065
  13. FLUOROURACIL [Concomitant]
     Route: 040
     Dates: start: 20101001, end: 20101029
  14. LEVOLEUCOVORIN CALCIUM [Concomitant]
     Indication: COLORECTAL CANCER
     Route: 041
     Dates: start: 20101001
  15. RABEPRAZOLE SODIUM [Concomitant]
     Dosage: UNK
     Route: 048
  16. URSO 250 [Concomitant]
     Dosage: UNK
     Route: 048
  17. ERBITUX [Suspect]
     Indication: COLORECTAL CANCER
     Dosage: UNK
     Route: 042
     Dates: start: 20090401, end: 20100201
  18. ALDACTONE [Concomitant]
     Dosage: UNK
     Route: 048
  19. PROCHLORPERAZINE [Concomitant]
     Dosage: UNK
     Route: 048

REACTIONS (12)
  - DYSGEUSIA [None]
  - DRY SKIN [None]
  - DECREASED APPETITE [None]
  - STOMATITIS [None]
  - ALOPECIA [None]
  - FATIGUE [None]
  - COLORECTAL CANCER [None]
  - PRURITUS [None]
  - NEUROPATHY PERIPHERAL [None]
  - DIARRHOEA [None]
  - INFUSION RELATED REACTION [None]
  - DERMATITIS ACNEIFORM [None]
